FAERS Safety Report 7600273-8 (Version None)
Quarter: 2011Q3

REPORT INFORMATION
  Report Type: 
  Country: None (occurrence: None)
  Receive Date: 20110711
  Receipt Date: 20110706
  Transmission Date: 20111222
  Serious: Yes (Hospitalization)
  Sender: FDA-Public Use
  Company Number: US-SANOFI-AVENTIS-2011SA043127

PATIENT
  Age: 82 Year
  Sex: Male

DRUGS (5)
  1. LASIX [Suspect]
     Route: 065
     Dates: start: 20101221, end: 20110615
  2. LASIX [Suspect]
     Route: 065
     Dates: start: 20110616
  3. ZAROXOLYN [Suspect]
     Route: 065
     Dates: start: 20110616
  4. ZAROXOLYN [Suspect]
     Route: 065
     Dates: start: 20110426, end: 20110615
  5. ANTITHROMBOTIC AGENTS [Suspect]
     Indication: THROMBOSIS PROPHYLAXIS
     Route: 048
     Dates: start: 20110615, end: 20110617

REACTIONS (1)
  - RENAL FAILURE ACUTE [None]
